FAERS Safety Report 6960200-3 (Version None)
Quarter: 2010Q3

REPORT INFORMATION
  Report Type: 
  Country: None (occurrence: None)
  Receive Date: 20100901
  Receipt Date: 20100819
  Transmission Date: 20110219
  Serious: Yes (Hospitalization)
  Sender: FDA-Public Use
  Company Number: FR-SANOFI-AVENTIS-2010SA049181

PATIENT
  Age: 55 Year
  Sex: Female
  Weight: 90 kg

DRUGS (16)
  1. SECTRAL [Suspect]
     Route: 048
     Dates: start: 20100712, end: 20100721
  2. LOVENOX [Suspect]
     Indication: PRODUCT USED FOR UNKNOWN INDICATION
     Route: 058
     Dates: start: 20100714, end: 20100723
  3. ESOMEPRAZOLE MAGNESIUM [Suspect]
     Indication: PRODUCT USED FOR UNKNOWN INDICATION
     Route: 048
     Dates: start: 20100201, end: 20100723
  4. TRAMADOL HCL [Suspect]
     Indication: PRODUCT USED FOR UNKNOWN INDICATION
     Route: 048
     Dates: start: 20100718, end: 20100722
  5. MORPHINE [Suspect]
     Indication: PAIN
     Dates: start: 20100715, end: 20100715
  6. ATARAX [Concomitant]
     Indication: PRODUCT USED FOR UNKNOWN INDICATION
     Dates: start: 20100715, end: 20100715
  7. SUFENTA PRESERVATIVE FREE [Concomitant]
     Indication: ANAESTHESIA
     Dates: start: 20100715, end: 20100715
  8. TRACRIUM [Concomitant]
     Indication: ANAESTHESIA
     Dates: start: 20100715, end: 20100715
  9. DIPRIVAN [Concomitant]
     Indication: ANAESTHESIA
     Dates: start: 20100715, end: 20100715
  10. CEFOTAXIME SODIUM [Concomitant]
     Indication: PRODUCT USED FOR UNKNOWN INDICATION
     Dates: start: 20100715, end: 20100715
  11. EPHEDRINE [Concomitant]
     Indication: PRODUCT USED FOR UNKNOWN INDICATION
     Dates: start: 20100715, end: 20100715
  12. PERFALGAN [Concomitant]
     Indication: PAIN
     Dates: start: 20100715, end: 20100715
  13. ACUPAN [Concomitant]
     Dates: start: 20100715, end: 20100715
  14. FLUOROURACIL [Concomitant]
     Dates: end: 20100615
  15. OXALIPLATIN [Concomitant]
     Dates: end: 20100615
  16. PRETERAX [Concomitant]
     Route: 048
     Dates: start: 20070101

REACTIONS (2)
  - ACUTE GENERALISED EXANTHEMATOUS PUSTULOSIS [None]
  - TOXIC SKIN ERUPTION [None]
